FAERS Safety Report 9254868 (Version 1)
Quarter: 2013Q2

REPORT INFORMATION
  Report Type: Spontaneous
  Country: US (occurrence: None)
  Receive Date: 20130419
  Receipt Date: 20130419
  Transmission Date: 20140414
  Serious: Yes (Other)
  Sender: FDA-Public Use
  Company Number: ACO_35496_2013

PATIENT
  Sex: Male

DRUGS (1)
  1. AMPYRA [Suspect]

REACTIONS (4)
  - Brain injury [None]
  - Mental impairment [None]
  - Memory impairment [None]
  - Multiple sclerosis [None]
